FAERS Safety Report 19883681 (Version 1)
Quarter: 2021Q3

REPORT INFORMATION
  Report Type: Spontaneous
  Country: US (occurrence: US)
  Receive Date: 20210923
  Receipt Date: 20210923
  Transmission Date: 20211014
  Serious: No
  Sender: FDA-Public Use
  Company Number: None

PATIENT
  Age: 71 Year
  Sex: Male

DRUGS (1)
  1. ETOPOSIDE (ETOPOSIDE 100MG/VIL INJ) [Suspect]
     Active Substance: ETOPOSIDE
     Indication: NEOPLASM MALIGNANT
     Dosage: OTHER DOSE:100MG/M2MG;?
     Route: 042
     Dates: start: 20210604, end: 20210604

REACTIONS (8)
  - Pruritus [None]
  - Flushing [None]
  - Rash [None]
  - Urticaria [None]
  - Burning sensation [None]
  - Syncope [None]
  - Dyspnoea [None]
  - Asthenia [None]

NARRATIVE: CASE EVENT DATE: 20210604
